FAERS Safety Report 9030891 (Version 1)
Quarter: 2013Q1

REPORT INFORMATION
  Report Type: Spontaneous
  Country: US (occurrence: US)
  Receive Date: 20130123
  Receipt Date: 20130123
  Transmission Date: 20140127
  Serious: Yes (Hospitalization)
  Sender: FDA-Public Use
  Company Number: US-BRISTOL-MYERS SQUIBB COMPANY-17294018

PATIENT
  Age: 45 Year
  Sex: Female
  Weight: 56 kg

DRUGS (7)
  1. SPRYCEL [Suspect]
     Indication: ACUTE LYMPHOCYTIC LEUKAEMIA
     Dates: start: 201206
  2. ADRIAMYCIN [Concomitant]
  3. DOXORUBICIN [Concomitant]
  4. CYTOXAN [Concomitant]
  5. DECADRON [Concomitant]
  6. BACTRIM [Concomitant]
  7. PROVERA [Concomitant]

REACTIONS (4)
  - Neutropenia [Unknown]
  - Nausea [Unknown]
  - Body temperature fluctuation [Unknown]
  - Dysgeusia [Unknown]
